FAERS Safety Report 11264467 (Version 2)
Quarter: 2015Q3

REPORT INFORMATION
  Report Type: Spontaneous
  Country: BR (occurrence: None)
  Receive Date: 20150709
  Receipt Date: 20150723
  Transmission Date: 20151125
  Serious: Yes (Other)
  Sender: FDA-Public Use
  Company Number: BR-2015VAL000436

PATIENT
  Sex: Male
  Weight: 93 kg

DRUGS (3)
  1. DIOVAN [Suspect]
     Active Substance: VALSARTAN
     Indication: BLOOD PRESSURE INCREASED
  2. METOPROLOL TARTRATE. [Suspect]
     Active Substance: METOPROLOL TARTRATE
     Indication: BLOOD PRESSURE INCREASED
  3. STANGLIT (PIOGLITAZONE HYDROCHLORIDE) [Concomitant]

REACTIONS (3)
  - Hypertension [None]
  - Diabetes mellitus [None]
  - Cataract [None]
